FAERS Safety Report 5614260-2 (Version None)
Quarter: 2008Q1

REPORT INFORMATION
  Report Type: 
  Country: None (occurrence: None)
  Receive Date: 20080130
  Receipt Date: 20080125
  Transmission Date: 20080703
  Serious: Yes (Death)
  Sender: FDA-Public Use
  Company Number: 2008SP002006

PATIENT
  Age: 71 Year
  Sex: Female
  Weight: 43.7 kg

DRUGS (1)
  1. TEMOZOLOMIDE [Suspect]
     Indication: COLORECTAL CANCER
     Dosage: 210 MG; QD; PO
     Route: 048
     Dates: start: 20070906, end: 20070920

REACTIONS (1)
  - DEATH [None]
